FAERS Safety Report 24786303 (Version 1)
Quarter: 2024Q4

REPORT INFORMATION
  Report Type: Spontaneous
  Country: US (occurrence: US)
  Receive Date: 20241229
  Receipt Date: 20241229
  Transmission Date: 20250114
  Serious: Yes (Death, Hospitalization, Other)
  Sender: AMGEN
  Company Number: US-AMGEN-USASP2024252083

PATIENT
  Age: 73 Year
  Sex: Male

DRUGS (2)
  1. PREDNISONE [Suspect]
     Active Substance: PREDNISONE
     Indication: Pemphigus
     Dosage: UNK
     Route: 065
  2. RITUXIMAB [Suspect]
     Active Substance: RITUXIMAB
     Indication: Pemphigus
     Dosage: UNK
     Route: 065

REACTIONS (11)
  - Pneumonia legionella [Fatal]
  - Cellulitis orbital [Unknown]
  - Pemphigus [Recovered/Resolved]
  - Pneumonia [Unknown]
  - Respiratory symptom [Unknown]
  - Atelectasis [Unknown]
  - Pulmonary mass [Unknown]
  - VEXAS syndrome [Unknown]
  - Weight decreased [Unknown]
  - Drug effective for unapproved indication [Unknown]
  - Off label use [Unknown]
